FAERS Safety Report 18691678 (Version 3)
Quarter: 2021Q1

REPORT INFORMATION
  Report Type: Spontaneous
  Country: GB (occurrence: GB)
  Receive Date: 20210102
  Receipt Date: 20210115
  Transmission Date: 20210419
  Serious: Yes (Death, Other)
  Sender: FDA-Public Use
  Company Number: GB-AUROBINDO-AUR-APL-2020-063733

PATIENT
  Age: 55 Year
  Sex: Male

DRUGS (13)
  1. PREGABALIN. [Suspect]
     Active Substance: PREGABALIN
     Dosage: 22300 MICROGRAM/MILLILITER, FEMORAL BLOOD CONCENTRATION
     Route: 065
  2. DIHYDROCODEINE [Suspect]
     Active Substance: DIHYDROCODEINE
     Dosage: 1681 MICROGRAM/MILLILITER,FEMORAL BLOOD CONCENTRATION
     Route: 065
  3. COCAINE [Suspect]
     Active Substance: COCAINE
     Dosage: 317 MICROGRAM/MILLILITER, FEMORAL BLOOD CONCENTRATION
     Route: 065
  4. PREGABALIN. [Suspect]
     Active Substance: PREGABALIN
     Indication: PRODUCT USED FOR UNKNOWN INDICATION
     Dosage: 22300 NANOGRAM PER MILLLIITER, FEMORAL BLOOD CONCENTRATION
     Route: 065
  5. BENZOYLECGONINE [Suspect]
     Active Substance: BENZOYLECGONINE
     Indication: PRODUCT USED FOR UNKNOWN INDICATION
     Dosage: 5135 NANOGRAM PER MILLLIITER,FEMORAL BLOOD CONCENTRATION
     Route: 065
  6. ETIZOLAM [Suspect]
     Active Substance: ETIZOLAM
     Dosage: 7 MICROGRAM/MILLILITER,FEMORAL BLOOD CONCENTRATION
     Route: 065
  7. BENZOYLECGONINE [Suspect]
     Active Substance: BENZOYLECGONINE
     Dosage: 5135 MICROGRAM/MILLILITER, FEMORAL BLOOD CONCENTRATION
     Route: 065
  8. ETIZOLAM [Suspect]
     Active Substance: ETIZOLAM
     Indication: PRODUCT USED FOR UNKNOWN INDICATION
     Dosage: 7 NANOGRAM PER MILLLIITER,FEMORAL BLOOD CONCENTRATION
     Route: 065
  9. AMITRIPTYLINE [Suspect]
     Active Substance: AMITRIPTYLINE
     Indication: PRODUCT USED FOR UNKNOWN INDICATION
     Dosage: 1859 NANOGRAM PER MILLLIITER (FEMORAL BLOOD CONCENTRATION)
     Route: 065
  10. COCAINE [Suspect]
     Active Substance: COCAINE
     Indication: PRODUCT USED FOR UNKNOWN INDICATION
     Dosage: 317 NANOMOLE PER MILLILITRE, FEMORAL BLOOD CONCENTRATION
     Route: 065
  11. NORTRIPTYLINE [Suspect]
     Active Substance: NORTRIPTYLINE
     Indication: PRODUCT USED FOR UNKNOWN INDICATION
     Dosage: 582 NANOGRAM PER MILLLIITER,FEMORAL BLOOD
     Route: 065
  12. DIHYDROCODEINE [Suspect]
     Active Substance: DIHYDROCODEINE
     Indication: PRODUCT USED FOR UNKNOWN INDICATION
     Dosage: 1681 NANOGRAM PER MILLLIITER,FEMORAL BLOOD CONCENTRATION
     Route: 065
  13. NORTRIPTYLINE [Suspect]
     Active Substance: NORTRIPTYLINE
     Dosage: 582 MICROGRAM/MILLILITER, FEMORAL BLOOD
     Route: 065

REACTIONS (2)
  - Toxicity to various agents [Fatal]
  - Drug abuse [Unknown]
